FAERS Safety Report 24165012 (Version 1)
Quarter: 2024Q3

REPORT INFORMATION
  Report Type: Spontaneous
  Country: US (occurrence: US)
  Receive Date: 20240802
  Receipt Date: 20240802
  Transmission Date: 20241016
  Serious: No
  Sender: ABBVIE
  Company Number: US-ABBVIE-5861641

PATIENT
  Age: 59 Year
  Sex: Female

DRUGS (3)
  1. UBRELVY [Suspect]
     Active Substance: UBROGEPANT
     Indication: Migraine
     Route: 048
  2. ASPIRIN [Concomitant]
     Active Substance: ASPIRIN
     Indication: Product used for unknown indication
  3. MOTRIN [Concomitant]
     Active Substance: IBUPROFEN
     Indication: Product used for unknown indication

REACTIONS (1)
  - Migraine [Unknown]

NARRATIVE: CASE EVENT DATE: 20240730
